FAERS Safety Report 9041215 (Version 1)
Quarter: 2013Q1

REPORT INFORMATION
  Report Type: Spontaneous
  Country: US (occurrence: None)
  Receive Date: 20130123
  Receipt Date: 20130123
  Transmission Date: 20140127
  Serious: No
  Sender: FDA-Public Use
  Company Number: None

PATIENT
  Sex: 0

DRUGS (1)
  1. MEFLOQUINE [Suspect]

REACTIONS (29)
  - Dizziness [None]
  - Polydipsia [None]
  - Dizziness [None]
  - Feeling of despair [None]
  - Euphoric mood [None]
  - Rash [None]
  - Skin ulcer [None]
  - Pruritus [None]
  - Purulence [None]
  - Impaired healing [None]
  - Blister [None]
  - Cough [None]
  - Palatal disorder [None]
  - Oral pain [None]
  - Pharyngeal ulceration [None]
  - Depressed mood [None]
  - Asthenia [None]
  - Depression [None]
  - Mood swings [None]
  - Stress [None]
  - Skin infection [None]
  - Insomnia [None]
  - Fear [None]
  - Impaired work ability [None]
  - Headache [None]
  - Photopsia [None]
  - Refusal of treatment by patient [None]
  - Brain injury [None]
  - Neurotoxicity [None]
